FAERS Safety Report 10040642 (Version 3)
Quarter: 2014Q2

REPORT INFORMATION
  Report Type: Spontaneous
  Country: DE (occurrence: DE)
  Receive Date: 20140327
  Receipt Date: 20140522
  Transmission Date: 20141212
  Serious: Yes (Other)
  Sender: FDA-Public Use
  Company Number: DE-UCBSA-115054

PATIENT
  Age: 33 Year
  Sex: Male
  Weight: 97 kg

DRUGS (3)
  1. KEPPRA [Suspect]
     Indication: EPILEPSY
     Route: 048
  2. RHINOPRONT (PSEUDOEPHEDRINE\TRIPROLIDINE) [Suspect]
     Indication: NASOPHARYNGITIS
     Dosage: 60/2.5 MG, ONCE IF NEEEDED
     Route: 048
  3. RHINOSPRAY [Concomitant]

REACTIONS (3)
  - Convulsion [Recovered/Resolved]
  - Thought blocking [Recovered/Resolved]
  - Disturbance in attention [Recovered/Resolved]
